FAERS Safety Report 4556283-0 (Version None)
Quarter: 2005Q1

REPORT INFORMATION
  Report Type: 
  Country: None (occurrence: None)
  Receive Date: 20050103
  Receipt Date: 20040819
  Transmission Date: 20050727
  Serious: Yes (Other)
  Sender: FDA-Public Use
  Company Number: 2004UW17623

PATIENT
  Sex: Female

DRUGS (2)
  1. CRESTOR [Suspect]
  2. CRESTOR [Suspect]

REACTIONS (5)
  - BURNING SENSATION [None]
  - DIZZINESS [None]
  - HEADACHE [None]
  - PARAESTHESIA [None]
  - STOMACH DISCOMFORT [None]
